FAERS Safety Report 18543789 (Version 1)
Quarter: 2020Q4

REPORT INFORMATION
  Report Type: Other
  Country: FR (occurrence: FR)
  Receive Date: 20201124
  Receipt Date: 20201124
  Transmission Date: 20210114
  Serious: Yes (Life-Threatening, Other)
  Sender: FDA-Public Use
  Company Number: FR-ROCHE-2716368

PATIENT

DRUGS (1)
  1. TOCILIZUMAB. [Suspect]
     Active Substance: TOCILIZUMAB
     Indication: COVID-19 PNEUMONIA
     Route: 042

REACTIONS (12)
  - Neutropenia [Unknown]
  - Alanine aminotransferase increased [Unknown]
  - Blood bilirubin increased [Unknown]
  - Thrombocytopenia [Unknown]
  - Blood alkaline phosphatase increased [Unknown]
  - Intentional product use issue [Unknown]
  - Pulmonary embolism [Unknown]
  - Pneumonia [Unknown]
  - Bacteraemia [Unknown]
  - Gamma-glutamyltransferase increased [Unknown]
  - Off label use [Unknown]
  - Aspartate aminotransferase increased [Unknown]
